FAERS Safety Report 19410861 (Version 1)
Quarter: 2021Q2

REPORT INFORMATION
  Report Type: Spontaneous
  Country: US (occurrence: US)
  Receive Date: 20210614
  Receipt Date: 20210614
  Transmission Date: 20210717
  Serious: No
  Sender: FDA-Public Use
  Company Number: US-STRIDES ARCOLAB LIMITED-2020SP007054

PATIENT
  Age: 36 Year
  Sex: Female

DRUGS (3)
  1. ZOLPIDEM [Suspect]
     Active Substance: ZOLPIDEM TARTRATE
     Indication: ALTERED STATE OF CONSCIOUSNESS
     Dosage: 10 MILLIGRAM, EVERY MORNING
     Route: 065
  2. BROMOCRIPTINE [Concomitant]
     Active Substance: BROMOCRIPTINE
     Indication: ALTERED STATE OF CONSCIOUSNESS
     Dosage: UNK
     Route: 065
  3. METHYLPHENIDATE. [Concomitant]
     Active Substance: METHYLPHENIDATE
     Indication: ALTERED STATE OF CONSCIOUSNESS
     Dosage: UNK
     Route: 065

REACTIONS (1)
  - Off label use [Unknown]
